FAERS Safety Report 14251402 (Version 4)
Quarter: 2018Q1

REPORT INFORMATION
  Report Type: Report from Study
  Country: US (occurrence: US)
  Receive Date: 20171205
  Receipt Date: 20180215
  Transmission Date: 20180508
  Serious: Yes (Death, Hospitalization)
  Sender: FDA-Public Use
  Company Number: US-ACTELION-A-NJ2017-163521

PATIENT
  Age: 81 Year
  Sex: Female

DRUGS (1)
  1. UPTRAVI [Suspect]
     Active Substance: SELEXIPAG
     Indication: PULMONARY ARTERIAL HYPERTENSION
     Dosage: 1600 MCG, BID
     Route: 048
     Dates: start: 20160804, end: 20180128

REACTIONS (10)
  - Cellulitis [Unknown]
  - Fluid retention [Unknown]
  - Pleural effusion [Unknown]
  - Death [Fatal]
  - Cardiac failure chronic [Unknown]
  - Bronchitis [Unknown]
  - Gastrointestinal perforation [Unknown]
  - Aspiration pleural cavity [Unknown]
  - Cerebrovascular accident [Unknown]
  - Pneumonia [Unknown]

NARRATIVE: CASE EVENT DATE: 201711
